FAERS Safety Report 20302480 (Version 2)
Quarter: 2022Q2

REPORT INFORMATION
  Report Type: Spontaneous
  Country: US (occurrence: US)
  Receive Date: 20220106
  Receipt Date: 20220527
  Transmission Date: 20220721
  Serious: Yes (Other)
  Sender: FDA-Public Use
  Company Number: US-GILEAD-2022-0563753

PATIENT
  Age: 57 Year
  Sex: Female
  Weight: 63.492 kg

DRUGS (22)
  1. ATRIPLA [Suspect]
     Active Substance: EFAVIRENZ\EMTRICITABINE\TENOFOVIR DISOPROXIL FUMARATE
     Indication: HIV infection
     Dosage: UNK
     Route: 048
     Dates: start: 2012
  2. ATRIPLA [Suspect]
     Active Substance: EFAVIRENZ\EMTRICITABINE\TENOFOVIR DISOPROXIL FUMARATE
     Dosage: UNK
     Route: 048
     Dates: start: 201503, end: 201811
  3. BIKTARVY [Concomitant]
     Active Substance: BICTEGRAVIR SODIUM\EMTRICITABINE\TENOFOVIR ALAFENAMIDE FUMARATE
  4. EMTRIVA [Concomitant]
     Active Substance: EMTRICITABINE
  5. EPIVIR [Concomitant]
     Active Substance: LAMIVUDINE
  6. KALETRA [Concomitant]
     Active Substance: LOPINAVIR\RITONAVIR
  7. NORVIR [Concomitant]
     Active Substance: RITONAVIR
  8. SUSTIVA [Concomitant]
     Active Substance: EFAVIRENZ
  9. TRIUMEQ [Concomitant]
     Active Substance: ABACAVIR SULFATE\DOLUTEGRAVIR SODIUM\LAMIVUDINE
  10. AMLODIPINE [Concomitant]
     Active Substance: AMLODIPINE BESYLATE
  11. CYCLOBENZAPRINE [Concomitant]
     Active Substance: CYCLOBENZAPRINE
  12. DICLOFENAC [Concomitant]
     Active Substance: DICLOFENAC
  13. NEXIUM I.V. [Concomitant]
     Active Substance: ESOMEPRAZOLE SODIUM
  14. ALLEGRA [FEXOFENADINE HYDROCHLORIDE] [Concomitant]
  15. FLUTICASONE [Concomitant]
     Active Substance: FLUTICASONE
  16. HYDROCHLOROTHIAZIDE [Concomitant]
     Active Substance: HYDROCHLOROTHIAZIDE
  17. LOSARTAN [Concomitant]
     Active Substance: LOSARTAN
  18. METOPROLOL [Concomitant]
     Active Substance: METOPROLOL
  19. PRAVASTATIN [Concomitant]
     Active Substance: PRAVASTATIN
  20. VALSARTAN [Concomitant]
     Active Substance: VALSARTAN
  21. TIZANIDINE [Concomitant]
     Active Substance: TIZANIDINE
  22. CELEBREX [Concomitant]
     Active Substance: CELECOXIB

REACTIONS (12)
  - Osteoporosis [Unknown]
  - Bone demineralisation [Unknown]
  - Pain [Not Recovered/Not Resolved]
  - Emotional distress [Not Recovered/Not Resolved]
  - Anxiety [Not Recovered/Not Resolved]
  - Anhedonia [Not Recovered/Not Resolved]
  - Osteopenia [Not Recovered/Not Resolved]
  - Arthralgia [Unknown]
  - Back pain [Unknown]
  - Intervertebral disc degeneration [Unknown]
  - Bone density decreased [Unknown]
  - Mobility decreased [Not Recovered/Not Resolved]

NARRATIVE: CASE EVENT DATE: 20181001
